FAERS Safety Report 9739462 (Version 3)
Quarter: 2014Q1

REPORT INFORMATION
  Report Type: Report from Study
  Country: GR (occurrence: GR)
  Receive Date: 20131209
  Receipt Date: 20140219
  Transmission Date: 20141002
  Serious: Yes (Hospitalization, Disabling)
  Sender: FDA-Public Use
  Company Number: GR-B.I. PHARMACEUTICALS,INC./RIDGEFIELD-2013-BI-04024GB

PATIENT
  Age: 53 Year
  Sex: Male
  Weight: 65 kg

DRUGS (10)
  1. BIBW 2992 [Suspect]
     Indication: SQUAMOUS CELL CARCINOMA OF HEAD AND NECK
     Dosage: 40 MG
     Route: 048
     Dates: start: 20130104, end: 20130205
  2. DOLFEN (FENTANYL) [Concomitant]
     Indication: ANALGESIC THERAPY
     Dosage: DD:75MCG/ 72H
     Route: 062
     Dates: start: 20121220
  3. LYRICA [Concomitant]
     Indication: ANALGESIC THERAPY
     Dosage: 150 MG
     Route: 048
     Dates: start: 20121220
  4. ABSTRAL [Concomitant]
     Indication: ANALGESIC THERAPY
     Dosage: 400 MCG
     Route: 048
     Dates: start: 20121220
  5. CYMBALTA [Concomitant]
     Indication: DEPRESSION
     Dosage: 30 MG
     Route: 048
     Dates: start: 20121220
  6. LOBIVON [Concomitant]
     Indication: HYPERTENSION
     Dosage: 100 MG
     Route: 048
     Dates: start: 20130118
  7. NOVAQUASOL [Concomitant]
     Indication: THERAPEUTIC SKIN CARE TOPICAL
     Dosage: DAILY DOSE X3
     Dates: start: 20130118
  8. TRAMOL [Concomitant]
     Indication: ANALGESIC THERAPY
     Dosage: 100 MG
     Route: 048
     Dates: start: 20130213
  9. CIPROXIN [Concomitant]
     Indication: ANTIBIOTIC THERAPY
     Dosage: 1000 MG
     Route: 048
     Dates: start: 20130213
  10. DIOVAN [Concomitant]
     Indication: HYPERTENSION
     Dosage: 160 MG
     Route: 048
     Dates: start: 20130213

REACTIONS (6)
  - Somnolence [Recovered/Resolved]
  - Hyponatraemia [Recovered/Resolved with Sequelae]
  - Ischaemic stroke [Unknown]
  - Fatigue [Recovered/Resolved]
  - Leukocytosis [Recovered/Resolved]
  - Stomatitis [Recovered/Resolved]
